FAERS Safety Report 16935981 (Version 4)
Quarter: 2021Q1

REPORT INFORMATION
  Report Type: Report from Study
  Country: US (occurrence: US)
  Receive Date: 20191018
  Receipt Date: 20210204
  Transmission Date: 20210419
  Serious: Yes (Hospitalization)
  Sender: FDA-Public Use
  Company Number: US-SHIRE-US201916945

PATIENT
  Age: 56 Year
  Sex: Female

DRUGS (20)
  1. PARATHYROID HORMONE [Suspect]
     Active Substance: PARATHYROID HORMONE
     Indication: HYPOPARATHYROIDISM
     Dosage: 100 MICROGRAM
     Route: 065
     Dates: start: 20160220
  2. PARATHYROID HORMONE [Suspect]
     Active Substance: PARATHYROID HORMONE
     Dosage: 100 MICROGRAM, QD
     Route: 065
  3. PARATHYROID HORMONE [Suspect]
     Active Substance: PARATHYROID HORMONE
     Dosage: 100 MICROGRAM, QD
     Route: 065
  4. PARATHYROID HORMONE [Suspect]
     Active Substance: PARATHYROID HORMONE
     Dosage: 100 MICROGRAM
     Route: 065
  5. VITAMIN D [VITAMIN D NOS] [Concomitant]
     Active Substance: VITAMIN D NOS
     Indication: POST PROCEDURAL HYPOPARATHYROIDISM
  6. PARATHYROID HORMONE [Suspect]
     Active Substance: PARATHYROID HORMONE
     Dosage: 100 MICROGRAM, QD
     Route: 065
  7. CALCIUM GLUCONATE MONOHYDRATE [Concomitant]
     Indication: POST PROCEDURAL HYPOPARATHYROIDISM
  8. PARATHYROID HORMONE [Suspect]
     Active Substance: PARATHYROID HORMONE
     Dosage: 100 MICROGRAM, QD
     Route: 065
  9. PARATHYROID HORMONE [Suspect]
     Active Substance: PARATHYROID HORMONE
     Dosage: 100 MICROGRAM, QD
     Route: 065
  10. PARATHYROID HORMONE [Suspect]
     Active Substance: PARATHYROID HORMONE
     Dosage: 100 MICROGRAM
     Route: 065
  11. CALCITRIOL. [Concomitant]
     Active Substance: CALCITRIOL
     Indication: POST PROCEDURAL HYPOPARATHYROIDISM
  12. PARATHYROID HORMONE [Suspect]
     Active Substance: PARATHYROID HORMONE
     Indication: HYPOPARATHYROIDISM
     Dosage: 100 MICROGRAM
     Route: 065
     Dates: start: 20160220
  13. PARATHYROID HORMONE [Suspect]
     Active Substance: PARATHYROID HORMONE
     Dosage: 100 MICROGRAM
     Route: 065
  14. PARATHYROID HORMONE [Suspect]
     Active Substance: PARATHYROID HORMONE
     Dosage: 100 MICROGRAM
     Route: 065
  15. PARATHYROID HORMONE [Suspect]
     Active Substance: PARATHYROID HORMONE
     Dosage: 100 MICROGRAM
     Route: 065
  16. HYDROCHLOROTHIAZIDE. [Concomitant]
     Active Substance: HYDROCHLOROTHIAZIDE
     Indication: POST PROCEDURAL HYPOPARATHYROIDISM
  17. PARATHYROID HORMONE [Suspect]
     Active Substance: PARATHYROID HORMONE
     Indication: HYPOPARATHYROIDISM
     Dosage: 100 MICROGRAM
     Route: 065
     Dates: start: 20160220
  18. PARATHYROID HORMONE [Suspect]
     Active Substance: PARATHYROID HORMONE
     Dosage: 100 MICROGRAM, QD
     Route: 065
  19. PARATHYROID HORMONE [Suspect]
     Active Substance: PARATHYROID HORMONE
     Dosage: 100 MICROGRAM
     Route: 065
  20. CALCIUM [Concomitant]
     Active Substance: CALCIUM
     Indication: POST PROCEDURAL HYPOPARATHYROIDISM

REACTIONS (8)
  - Hypocalcaemia [Unknown]
  - Malaise [Unknown]
  - Device issue [Unknown]
  - Vision blurred [Unknown]
  - Feeling abnormal [Recovered/Resolved]
  - Recalled product [Unknown]
  - Tetany [Not Recovered/Not Resolved]
  - Fatigue [Unknown]

NARRATIVE: CASE EVENT DATE: 20190617
